FAERS Safety Report 24191172 (Version 3)
Quarter: 2025Q4

REPORT INFORMATION
  Report Type: Spontaneous
  Country: JP (occurrence: JP)
  Receive Date: 20240808
  Receipt Date: 20251124
  Transmission Date: 20260118
  Serious: Yes (Hospitalization)
  Sender: EISAI
  Company Number: JP-Eisai-202404816_LEN-TMC_P_1

PATIENT
  Age: 54 Year
  Sex: Male

DRUGS (2)
  1. LENVIMA [Suspect]
     Active Substance: LENVATINIB
     Indication: Thymic carcinoma
     Route: 048
     Dates: start: 20240116
  2. LENVIMA [Suspect]
     Active Substance: LENVATINIB
     Dosage: DOSE AND FREQUENCY WERE UNKNOWN
     Route: 048

REACTIONS (1)
  - Cholecystitis chronic [Recovered/Resolved]

NARRATIVE: CASE EVENT DATE: 20240716
